FAERS Safety Report 15284764 (Version 1)
Quarter: 2018Q3

REPORT INFORMATION
  Report Type: Spontaneous
  Country: US (occurrence: US)
  Receive Date: 20180801
  Receipt Date: 20180801
  Transmission Date: 20181010
  Serious: Yes (Life-Threatening, Hospitalization)
  Sender: FDA-Public Use
  Company Number: None

PATIENT
  Age: 83 Year
  Sex: Male
  Weight: 80.5 kg

DRUGS (2)
  1. NAPROXEN. [Suspect]
     Active Substance: NAPROXEN
     Route: 048
     Dates: start: 20150812, end: 20160531
  2. DABIGATRAN [Suspect]
     Active Substance: DABIGATRAN
     Indication: ATRIAL FIBRILLATION
     Route: 048
     Dates: start: 20160323, end: 20160531

REACTIONS (12)
  - Dizziness postural [None]
  - Hypotension [None]
  - Haemorrhage [None]
  - Vitamin K deficiency [None]
  - Thrombocytopenia [None]
  - Asthenia [None]
  - Melaena [None]
  - Gastric haemorrhage [None]
  - Dizziness [None]
  - International normalised ratio increased [None]
  - Acute kidney injury [None]
  - Anaemia [None]

NARRATIVE: CASE EVENT DATE: 20160531
